FAERS Safety Report 14648256 (Version 1)
Quarter: 2018Q1

REPORT INFORMATION
  Report Type: Spontaneous
  Country: ES (occurrence: ES)
  Receive Date: 20180316
  Receipt Date: 20180316
  Transmission Date: 20180509
  Serious: Yes (Hospitalization)
  Sender: FDA-Public Use
  Company Number: ES-TEVA-2018-ES-868221

PATIENT
  Age: 86 Year
  Sex: Male

DRUGS (1)
  1. BISOPROLOL (2328A) [Suspect]
     Active Substance: BISOPROLOL
     Indication: ATRIAL FIBRILLATION
     Route: 048

REACTIONS (3)
  - Bradycardia [Recovered/Resolved]
  - Dizziness [Recovered/Resolved]
  - Atrioventricular block first degree [Recovered/Resolved]
